FAERS Safety Report 16961620 (Version 1)
Quarter: 2019Q4

REPORT INFORMATION
  Report Type: Spontaneous
  Country: US (occurrence: US)
  Receive Date: 20191024
  Receipt Date: 20191024
  Transmission Date: 20200122
  Serious: Yes (Hospitalization)
  Sender: FDA-Public Use
  Company Number: None

PATIENT
  Sex: Female

DRUGS (8)
  1. PANTOPRAZOLE [Concomitant]
     Active Substance: PANTOPRAZOLE
  2. FIRVANQ [Concomitant]
     Active Substance: VANCOMYCIN HYDROCHLORIDE
  3. MAG OXIDE [Concomitant]
     Active Substance: MAGNESIUM OXIDE
  4. ZOLPIDEM [Concomitant]
     Active Substance: ZOLPIDEM TARTRATE
  5. AMLODIPINE [Concomitant]
     Active Substance: AMLODIPINE BESYLATE
  6. CAPECITABINE. [Suspect]
     Active Substance: CAPECITABINE
     Indication: PANCREATIC CARCINOMA
     Dosage: ?          OTHER FREQUENCY:BID MON-FRI;?
     Route: 048
     Dates: start: 20190911
  7. LOSARTAN POT [Concomitant]
     Active Substance: LOSARTAN POTASSIUM
  8. SPIRONOLACT [Concomitant]
     Active Substance: SPIRONOLACTONE

REACTIONS (2)
  - Renal disorder [None]
  - Therapy cessation [None]
